FAERS Safety Report 6234718-5 (Version None)
Quarter: 2009Q2

REPORT INFORMATION
  Report Type: 
  Country: None (occurrence: None)
  Receive Date: 20090616
  Receipt Date: 20090616
  Transmission Date: 20091009
  Serious: Yes (Life-Threatening, Hospitalization)
  Sender: FDA-Public Use
  Company Number: None

PATIENT
  Age: 41 Year
  Sex: Female
  Weight: 63.5036 kg

DRUGS (2)
  1. TOPAMAX [Suspect]
     Indication: FIBROMYALGIA
     Dosage: 100 MG 2 TIMES A DAY PO
     Route: 048
     Dates: start: 20061101, end: 20080110
  2. TOPAMAX [Suspect]
     Indication: MIGRAINE
     Dosage: 100 MG 2 TIMES A DAY PO
     Route: 048
     Dates: start: 20061101, end: 20080110

REACTIONS (6)
  - ANOREXIA [None]
  - CHEST PAIN [None]
  - HEART RATE INCREASED [None]
  - SUICIDAL IDEATION [None]
  - VOMITING [None]
  - WEIGHT DECREASED [None]
